FAERS Safety Report 7284247-5 (Version None)
Quarter: 2011Q1

REPORT INFORMATION
  Report Type: 
  Country: None (occurrence: None)
  Receive Date: 20110209
  Receipt Date: 20110204
  Transmission Date: 20110831
  Serious: Yes (Hospitalization)
  Sender: FDA-Public Use
  Company Number: CA-US-EMD SERONO, INC.-7015720

PATIENT
  Sex: Female

DRUGS (1)
  1. REBIF [Suspect]
     Indication: RELAPSING-REMITTING MULTIPLE SCLEROSIS
     Dates: start: 20000216

REACTIONS (6)
  - BREAST CANCER [None]
  - PAIN IN EXTREMITY [None]
  - SOMNOLENCE [None]
  - FAECAL INCONTINENCE [None]
  - INGROWING NAIL [None]
  - FATIGUE [None]
